FAERS Safety Report 9251957 (Version 1)
Quarter: 2013Q2

REPORT INFORMATION
  Report Type: Spontaneous
  Country: JP (occurrence: JP)
  Receive Date: 20130424
  Receipt Date: 20130424
  Transmission Date: 20140414
  Serious: Yes (Other)
  Sender: FDA-Public Use
  Company Number: PHHY2013JP039041

PATIENT
  Age: 52 Year
  Sex: Male

DRUGS (11)
  1. PREDNISOLONE [Suspect]
     Indication: GASTROENTERITIS EOSINOPHILIC
     Dosage: 40 MG/DAY
  2. PREDNISOLONE [Suspect]
     Dosage: 20 MG/DAY
  3. PREDNISOLONE [Suspect]
     Dosage: 3 MG/DAY
  4. PREDNISOLONE [Suspect]
     Dosage: 20 MG,/DAY
  5. PREDNISOLONE [Suspect]
     Dosage: 5 MG/DAY
  6. PREDNISOLONE [Suspect]
     Dosage: 10 MG/DAY
  7. PREDNISOLONE [Suspect]
     Dosage: 6 MG/DAY
  8. PREDNISOLONE [Suspect]
     Dosage: 4 MG/DAY
  9. CLARITHROMYCIN [Suspect]
     Dosage: 400 MG/DAY
  10. CLARITHROMYCIN [Suspect]
     Dosage: 800 MG/DAY
  11. CLARITHROMYCIN [Suspect]
     Dosage: 600 MG/DAY

REACTIONS (2)
  - Blood glucose increased [Unknown]
  - Diarrhoea [Unknown]
